FAERS Safety Report 7915768-7 (Version None)
Quarter: 2011Q4

REPORT INFORMATION
  Report Type: 
  Country: None (occurrence: None)
  Receive Date: 20111115
  Receipt Date: 20111102
  Transmission Date: 20120403
  Serious: Yes (Hospitalization)
  Sender: FDA-Public Use
  Company Number: CA-MYLANLABS-2011S1023073

PATIENT
  Age: 64 Year
  Sex: Female

DRUGS (7)
  1. ALENDRONIC ACID [Concomitant]
     Dosage: 70MG WEEKLY
     Route: 065
  2. WARFARIN SODIUM [Concomitant]
     Indication: ATRIAL FIBRILLATION
     Dosage: 1MG DAILY
     Route: 065
  3. OXYCODONE HCL [Concomitant]
     Dosage: AS NEEDED
     Route: 065
  4. TETRACYCLINE [Concomitant]
     Indication: RESPIRATORY TRACT INFECTION
     Route: 065
  5. MELOXICAM [Concomitant]
     Dosage: 15MG DAILY
     Route: 065
  6. PAROXETINE HCL [Concomitant]
     Indication: DEPRESSION
     Dosage: 20MG DAILY
     Route: 065
  7. AMIODARONE HCL [Suspect]
     Indication: ATRIAL FIBRILLATION
     Route: 065

REACTIONS (12)
  - INTERSTITIAL LUNG DISEASE [None]
  - VOMITING [None]
  - TORSADE DE POINTES [None]
  - SINUS BRADYCARDIA [None]
  - NAUSEA [None]
  - MEDICATION ERROR [None]
  - LIVER INJURY [None]
  - TOXICITY TO VARIOUS AGENTS [None]
  - HYPERTHYROIDISM [None]
  - DIARRHOEA [None]
  - EMPHYSEMA [None]
  - CARDIAC ARREST [None]
